FAERS Safety Report 6465845-5 (Version None)
Quarter: 2009Q4

REPORT INFORMATION
  Report Type: 
  Country: None (occurrence: None)
  Receive Date: 20091127
  Receipt Date: 20091112
  Transmission Date: 20100525
  Serious: No
  Sender: FDA-Public Use
  Company Number: 8054007

PATIENT
  Age: 38 Year
  Sex: Female

DRUGS (9)
  1. KEPPRA [Suspect]
     Indication: EPILEPSY
     Dosage: 1000 MG /D PO
     Route: 048
     Dates: start: 20090101
  2. VITAMIN TAB [Concomitant]
  3. FOLIC ACID [Concomitant]
  4. CALCIUM [Concomitant]
  5. CLARITIN [Concomitant]
  6. CARBATROL [Concomitant]
  7. SUDAFED 12 HOUR [Concomitant]
  8. ROBITUSSIN DM [Concomitant]
  9. AMOXICILLIN [Concomitant]

REACTIONS (6)
  - BACTERIAL TEST [None]
  - BLADDER SPASM [None]
  - DRUG EXPOSURE DURING PREGNANCY [None]
  - MULTIPLE ALLERGIES [None]
  - NASOPHARYNGITIS [None]
  - PLACENTA PRAEVIA [None]
